FAERS Safety Report 5148624-0 (Version None)
Quarter: 2006Q4

REPORT INFORMATION
  Report Type: 
  Country: None (occurrence: None)
  Receive Date: 20061107
  Receipt Date: 20061023
  Transmission Date: 20070319
  Serious: Yes (Other)
  Sender: FDA-Public Use
  Company Number: 2006RR-04187

PATIENT

DRUGS (1)
  1. RANITAB RATIOPHARM 75 MG FILMTABLETTEN (RANITINDINE) TABLET, 75 MG [Suspect]
     Dosage: ORAL
     Route: 048

REACTIONS (1)
  - INTRAOCULAR PRESSURE INCREASED [None]
